FAERS Safety Report 6208621-0 (Version None)
Quarter: 2009Q2

REPORT INFORMATION
  Report Type: 
  Country: None (occurrence: None)
  Receive Date: 20090529
  Receipt Date: 20090525
  Transmission Date: 20091009
  Serious: Yes (Hospitalization)
  Sender: FDA-Public Use
  Company Number: FR-JNJFOC-20090505590

PATIENT
  Sex: Male

DRUGS (7)
  1. IMODIUM [Suspect]
     Indication: DIARRHOEA
     Dosage: 4 TABLETS ON 06-APR-2009, THEN 3 TABLETS DAILY
     Route: 048
  2. STALEVO 100 [Concomitant]
  3. PERGOLIDE MESYLATE [Concomitant]
  4. ACETAMINOPHEN [Concomitant]
  5. AUGMENTIN '125' [Concomitant]
  6. NEXIUM [Concomitant]
  7. METRONIDAZOLE [Concomitant]

REACTIONS (1)
  - INTESTINAL OBSTRUCTION [None]
